FAERS Safety Report 8578774-8 (Version None)
Quarter: 2012Q3

REPORT INFORMATION
  Report Type: 
  Country: None (occurrence: None)
  Receive Date: 20120808
  Receipt Date: 20120731
  Transmission Date: 20120928
  Serious: Yes (Hospitalization, Other)
  Sender: FDA-Public Use
  Company Number: AU-B.I. PHARMACEUTICALS,INC./RIDGEFIELD-2012-AU-01337AU

PATIENT
  Sex: Female

DRUGS (9)
  1. NEXIUM [Concomitant]
     Dosage: 40 MG
  2. CRESTOR [Concomitant]
     Dosage: 5 MG
  3. DIGOXIN [Concomitant]
     Dosage: 0.0625 MG
  4. OSTELIN [Concomitant]
  5. ACETAMINOPHEN [Concomitant]
  6. ZYLOPRIM [Concomitant]
     Dosage: 100 MG
  7. PRADAXA [Suspect]
     Indication: ATRIAL FIBRILLATION
     Dosage: 220 MG
     Dates: start: 20110601
  8. ANPEC [Concomitant]
     Dosage: 80 MG
  9. RAMIPRIL [Concomitant]
     Dosage: 1.25 MG

REACTIONS (6)
  - ROAD TRAFFIC ACCIDENT [None]
  - COLON CANCER RECURRENT [None]
  - STERNAL FRACTURE [None]
  - SERUM FERRITIN DECREASED [None]
  - HERPES ZOSTER [None]
  - HAEMOGLOBIN DECREASED [None]
